FAERS Safety Report 18968260 (Version 1)
Quarter: 2021Q1

REPORT INFORMATION
  Report Type: Spontaneous
  Country: US (occurrence: US)
  Receive Date: 20210304
  Receipt Date: 20210304
  Transmission Date: 20210420
  Serious: No
  Sender: FDA-Public Use
  Company Number: None

PATIENT
  Age: 83 Year
  Sex: Female
  Weight: 83.7 kg

DRUGS (7)
  1. ELEQUIS [Concomitant]
  2. DIGOXIN. [Concomitant]
     Active Substance: DIGOXIN
  3. CLINDAMYCIN. [Suspect]
     Active Substance: CLINDAMYCIN
     Indication: BREAST RECONSTRUCTION
     Dosage: ?          QUANTITY:1 CAPSULE(S);?
     Route: 048
  4. FISH OIL [Concomitant]
     Active Substance: FISH OIL
  5. VERAPAMIL [Concomitant]
     Active Substance: VERAPAMIL HYDROCHLORIDE
  6. CRESTOR [Concomitant]
     Active Substance: ROSUVASTATIN CALCIUM
  7. POTASSIUM [Concomitant]
     Active Substance: POTASSIUM

REACTIONS (3)
  - Pruritus [None]
  - Urticaria [None]
  - Vulvovaginal pruritus [None]

NARRATIVE: CASE EVENT DATE: 20210303
